FAERS Safety Report 25477262 (Version 2)
Quarter: 2025Q3

REPORT INFORMATION
  Report Type: Report from Study
  Country: US (occurrence: US)
  Receive Date: 20250625
  Receipt Date: 20250814
  Transmission Date: 20251021
  Serious: No
  Sender: SUNOVION
  Company Number: US-SMPA-2025SPA006872AA

PATIENT
  Age: 60 Year
  Sex: Male

DRUGS (2)
  1. ORGOVYX [Suspect]
     Active Substance: RELUGOLIX
     Indication: Prostate cancer
     Route: 048
  2. ORGOVYX [Suspect]
     Active Substance: RELUGOLIX
     Dosage: 120 MG, QD
     Route: 048
     Dates: start: 20240202

REACTIONS (6)
  - Muscle spasms [Unknown]
  - Blood cholesterol abnormal [Unknown]
  - Somnolence [Unknown]
  - Pelvic pain [Unknown]
  - Fatigue [Unknown]
  - Back pain [Unknown]
